FAERS Safety Report 8573705-9 (Version None)
Quarter: 2012Q3

REPORT INFORMATION
  Report Type: 
  Country: None (occurrence: None)
  Receive Date: 20120806
  Receipt Date: 20120730
  Transmission Date: 20120928
  Serious: Yes (Other)
  Sender: FDA-Public Use
  Company Number: US-GLAXOSMITHKLINE-A0984275A

PATIENT
  Sex: Female

DRUGS (3)
  1. ALBUTEROL [Concomitant]
  2. CELEBREX [Concomitant]
  3. FLUTICASONE PROPIONATE [Suspect]
     Indication: ASTHMA
     Dosage: 1PUFF TWICE PER DAY
     Route: 055
     Dates: start: 20020101

REACTIONS (4)
  - CONTUSION [None]
  - FEELING ABNORMAL [None]
  - NEOPLASM MALIGNANT [None]
  - MALAISE [None]
